FAERS Safety Report 24879296 (Version 1)
Quarter: 2025Q1

REPORT INFORMATION
  Report Type: Spontaneous
  Country: US (occurrence: US)
  Receive Date: 20250123
  Receipt Date: 20250123
  Transmission Date: 20250409
  Serious: No
  Sender: SANOFI AVENTIS
  Company Number: US-SA-2025SA020135

PATIENT
  Sex: Female
  Weight: 43.64 kg

DRUGS (2)
  1. DUPIXENT [Suspect]
     Active Substance: DUPILUMAB
     Indication: Dermatitis atopic
     Dosage: 300MG,EVERY OTHER WEEK
     Route: 058
     Dates: start: 202309
  2. ADBRY [Concomitant]
     Active Substance: TRALOKINUMAB-LDRM

REACTIONS (6)
  - Eye irritation [Recovered/Resolved]
  - Eye discharge [Recovered/Resolved]
  - Dermatitis atopic [Not Recovered/Not Resolved]
  - Eye swelling [Recovered/Resolved]
  - Ocular hyperaemia [Recovered/Resolved]
  - Drug effect less than expected [Unknown]

NARRATIVE: CASE EVENT DATE: 20241001
